FAERS Safety Report 13367723 (Version 1)
Quarter: 2017Q1

REPORT INFORMATION
  Report Type: Spontaneous
  Country: CO (occurrence: CO)
  Receive Date: 20170324
  Receipt Date: 20170324
  Transmission Date: 20170429
  Serious: Yes (Death)
  Sender: FDA-Public Use
  Company Number: CO-COVIS PHARMA S.A.R.L.-2017COV00006

PATIENT
  Age: 58 Year
  Sex: Male

DRUGS (3)
  1. RILUTEK [Suspect]
     Active Substance: RILUZOLE
     Dosage: 1 DOSAGE UNITS, 2X/DAY
     Route: 048
     Dates: start: 2015, end: 20170223
  2. ENALAPRIL [Concomitant]
     Active Substance: ENALAPRIL
     Dosage: UNK
     Dates: end: 20170223
  3. SERTRALINE [Concomitant]
     Active Substance: SERTRALINE HYDROCHLORIDE
     Dosage: UNK
     Dates: end: 20170223

REACTIONS (1)
  - Dyspnoea [Fatal]

NARRATIVE: CASE EVENT DATE: 20170223
